FAERS Safety Report 5530224-1 (Version None)
Quarter: 2007Q4

REPORT INFORMATION
  Report Type: 
  Country: None (occurrence: None)
  Receive Date: 20071119
  Receipt Date: 20071012
  Transmission Date: 20080405
  Serious: No
  Sender: FDA-Public Use
  Company Number: TPA2007A02098

PATIENT
  Age: 59 Year
  Sex: Male
  Weight: 90.7194 kg

DRUGS (36)
  1. ROZEREM [Suspect]
     Indication: INSOMNIA
     Dosage: 8 MG, HS, PER ORAL
     Route: 048
     Dates: start: 20070531, end: 20070601
  2. ROZEREM [Suspect]
     Indication: INSOMNIA
     Dosage: 8 MG, HS, PER ORAL
     Route: 048
     Dates: start: 20070701, end: 20070701
  3. MELATONIN (MELATONIN) [Suspect]
     Dosage: 300 MCG
     Dates: start: 20070701
  4. ALBUTEROL [Concomitant]
  5. COZAAR [Concomitant]
  6. ETODOLAC [Concomitant]
  7. ALLEGRA (FEXOFENADINE HYDROCHLORIDE) [Concomitant]
  8. HYDROCHLOROTHIAZIDE [Concomitant]
  9. SYNTHROID [Concomitant]
  10. METHOTREXATE [Concomitant]
  11. METOPROLOL TARTRATE [Concomitant]
  12. MINOCYCLINE HCL [Concomitant]
  13. SINGULAIR [Concomitant]
  14. OMEPRAZOLE [Concomitant]
  15. ZOLOFT [Concomitant]
  16. HALCION [Concomitant]
  17. SAW PALMETTO (SERENOA REPENS) [Concomitant]
  18. POTASSIUM CHLORIDE [Concomitant]
  19. NIACIN [Concomitant]
  20. ELIDEL [Concomitant]
  21. METAMUCIL (PLANTAGO OVATA) [Concomitant]
  22. CALCIUM (CALCIUM) [Concomitant]
  23. ASCORBIC ACID [Concomitant]
  24. CRESTOR [Concomitant]
  25. TRAMADOL HCL [Concomitant]
  26. VORICONAZOLE (VORICONAZOLE) [Concomitant]
  27. PROCTOCREAM HC (HYDROCORTISONE ACETATE, PRAMOCAINE HYDROCHLORIDE) [Concomitant]
  28. CLOBETASOL (CLOBETASOL) [Concomitant]
  29. ASPIRIN [Concomitant]
  30. ACETAMINOPHEN [Concomitant]
  31. GAVISCON (ALL OTHER THERAPEUTIC PRODUCTS) [Concomitant]
  32. ALLERGY SUBLINGUAL DROPS (ALL OTHER THERAPEUTIC PRODUCTS) [Concomitant]
  33. CENTRUM SILVER (ASCORBIC ACID, TOCOPHERYL ACETATE, RETINOL, ZINC, CALC [Concomitant]
  34. SENNOSIDES LAXATIVE (ALL OTHER THERAPEUTICS PRODUCTS) [Concomitant]
  35. FISH OIL (FISH OIL) [Concomitant]
  36. NEUTRAJOINT(ALL OTHER THERAPEUTIC PRODUCTS) [Concomitant]

REACTIONS (2)
  - DRUG INEFFECTIVE [None]
  - INITIAL INSOMNIA [None]
